FAERS Safety Report 7434447-6 (Version None)
Quarter: 2011Q2

REPORT INFORMATION
  Report Type: 
  Country: None (occurrence: None)
  Receive Date: 20110425
  Receipt Date: 20110412
  Transmission Date: 20111010
  Serious: Yes (Other)
  Sender: FDA-Public Use
  Company Number: PHHY2011US31030

PATIENT
  Sex: Female

DRUGS (4)
  1. CALCIUM [Concomitant]
  2. PAIN MEDICATION [Concomitant]
  3. VITAMIN D [Concomitant]
  4. RECLAST [Suspect]
     Dosage: 5 MG
     Route: 042
     Dates: start: 20110117

REACTIONS (6)
  - SCREAMING [None]
  - DYSSTASIA [None]
  - DYSPNOEA [None]
  - PAIN [None]
  - INCORRECT DOSE ADMINISTERED [None]
  - WALKING AID USER [None]
